FAERS Safety Report 9624590 (Version 3)
Quarter: 2013Q4

REPORT INFORMATION
  Report Type: Spontaneous
  Country: US (occurrence: US)
  Receive Date: 20131015
  Receipt Date: 20131105
  Transmission Date: 20140711
  Serious: Yes (Disabling)
  Sender: FDA-Public Use
  Company Number: US-ROXANE LABORATORIES, INC.-2013-RO-01675RO

PATIENT
  Sex: Female

DRUGS (5)
  1. AZATHIOPRINE [Suspect]
     Indication: RENAL TRANSPLANT
     Dosage: 100 MG
     Route: 048
     Dates: start: 1982, end: 201310
  2. PREDNISONE [Concomitant]
     Indication: RENAL TRANSPLANT
     Dosage: 10 MG
     Route: 048
     Dates: start: 1984, end: 2013
  3. PREDNISONE [Concomitant]
     Dosage: 5 MG
     Route: 048
     Dates: start: 2013
  4. MORPHINE [Concomitant]
     Indication: PAIN
  5. OXYCODONE [Concomitant]
     Indication: PAIN

REACTIONS (2)
  - Squamous cell carcinoma [Not Recovered/Not Resolved]
  - Basal cell carcinoma [Not Recovered/Not Resolved]
